FAERS Safety Report 20983267 (Version 2)
Quarter: 2022Q2

REPORT INFORMATION
  Report Type: Spontaneous
  Country: AU (occurrence: AU)
  Receive Date: 20220620
  Receipt Date: 20220629
  Transmission Date: 20220721
  Serious: Yes (Other)
  Sender: FDA-Public Use
  Company Number: AU-NAPPMUNDI-GBR-2022-0097580

PATIENT
  Sex: Female

DRUGS (6)
  1. NORSPAN [Suspect]
     Active Substance: BUPRENORPHINE
     Indication: Back pain
     Dosage: 1 PATCH, WEEKLY (STRENGTH: 10 MCG )
     Route: 065
  2. NORSPAN [Suspect]
     Active Substance: BUPRENORPHINE
     Dosage: 1 PATCH, WEEKLY (STRENGTH: 10 MCG) 2 BOXES
     Route: 065
  3. NORSPAN [Suspect]
     Active Substance: BUPRENORPHINE
     Dosage: 1 PATCH, WEEKLY (STRENGTH: 10 MCG) 2 BOXES
     Route: 065
  4. LYRICA [Concomitant]
     Active Substance: PREGABALIN
     Indication: Neuropathy peripheral
     Dosage: UNK
  5. LYRICA [Concomitant]
     Active Substance: PREGABALIN
     Dosage: UNK
  6. LYRICA [Concomitant]
     Active Substance: PREGABALIN
     Dosage: 1 UNK

REACTIONS (6)
  - Blindness [Unknown]
  - Therapy interrupted [Unknown]
  - Product quality issue [Unknown]
  - Intentional product misuse [Unknown]
  - Inadequate analgesia [Unknown]
  - Visual impairment [Unknown]
